FAERS Safety Report 16193476 (Version 1)
Quarter: 2019Q2

REPORT INFORMATION
  Report Type: Spontaneous
  Country: US (occurrence: US)
  Receive Date: 20190413
  Receipt Date: 20190413
  Transmission Date: 20190711
  Serious: No
  Sender: FDA-Public Use
  Company Number: US-TEVA-2019-US-1029461

PATIENT
  Sex: Female

DRUGS (4)
  1. CLONIDINE HYDROCHLORIDE TABLET [Suspect]
     Active Substance: CLONIDINE HYDROCHLORIDE
     Indication: BLOOD PRESSURE INCREASED
     Route: 065
     Dates: start: 20190311
  2. COZAAR [Concomitant]
     Active Substance: LOSARTAN POTASSIUM
     Route: 065
  3. CLONIDINE HYDROCHLORIDE TABLET [Suspect]
     Active Substance: CLONIDINE HYDROCHLORIDE
     Route: 065
  4. LOPRESSOR [Concomitant]
     Active Substance: METOPROLOL TARTRATE
     Route: 065

REACTIONS (4)
  - Dizziness [Unknown]
  - Constipation [Unknown]
  - Muscle spasms [Unknown]
  - Inappropriate schedule of product administration [Unknown]
